FAERS Safety Report 12893323 (Version 1)
Quarter: 2016Q4

REPORT INFORMATION
  Report Type: Spontaneous
  Country: US (occurrence: US)
  Receive Date: 20161027
  Receipt Date: 20161027
  Transmission Date: 20170207
  Serious: Yes (Hospitalization)
  Sender: FDA-Public Use
  Company Number: None

PATIENT
  Age: 78 Year
  Sex: Male

DRUGS (17)
  1. ZYTIGA [Suspect]
     Active Substance: ABIRATERONE ACETATE
     Indication: PROSTATE CANCER
     Route: 048
     Dates: start: 201602
  2. ATORVASTATIN [Concomitant]
     Active Substance: ATORVASTATIN
  3. ELIQUIS [Concomitant]
     Active Substance: APIXABAN
  4. TAMSULOSIN [Concomitant]
     Active Substance: TAMSULOSIN
  5. GLIPIZIDE. [Concomitant]
     Active Substance: GLIPIZIDE
  6. CILOSTAZOL. [Concomitant]
     Active Substance: CILOSTAZOL
  7. DILTIAZEM. [Concomitant]
     Active Substance: DILTIAZEM
  8. GABAPETNIN [Concomitant]
  9. SOD BICRAB [Concomitant]
  10. VITAMIN B6 [Concomitant]
     Active Substance: PYRIDOXINE HYDROCHLORIDE
  11. METORPOL [Concomitant]
  12. PREDNISONE. [Concomitant]
     Active Substance: PREDNISONE
  13. FISH OIL [Concomitant]
     Active Substance: FISH OIL
  14. CYANOCABALAM [Concomitant]
  15. PROLIA [Concomitant]
     Active Substance: DENOSUMAB
  16. AMIODARONE [Concomitant]
     Active Substance: AMIODARONE
  17. VITAMIN D [Concomitant]
     Active Substance: CHOLECALCIFEROL

REACTIONS (8)
  - Dizziness [None]
  - Diarrhoea [None]
  - Dyspnoea [None]
  - Constipation [None]
  - Nephrolithiasis [None]
  - Atrial fibrillation [None]
  - Blood urine present [None]
  - Vomiting [None]

NARRATIVE: CASE EVENT DATE: 201603
